FAERS Safety Report 15323351 (Version 4)
Quarter: 2019Q2

REPORT INFORMATION
  Report Type: Report from Study
  Country: US (occurrence: US)
  Receive Date: 20180827
  Receipt Date: 20190426
  Transmission Date: 20190711
  Serious: Yes (Life-Threatening, Other)
  Sender: FDA-Public Use
  Company Number: PHEH2018US035580

PATIENT
  Age: 32 Year
  Sex: Female
  Weight: 65.77 kg

DRUGS (11)
  1. EXCEDRIN [Suspect]
     Active Substance: ACETAMINOPHEN\ASPIRIN\CAFFEINE
     Indication: PRODUCT USED FOR UNKNOWN INDICATION
     Dosage: UNK UNK, QD
     Route: 065
  2. MARLISSA [Concomitant]
     Active Substance: ETHINYL ESTRADIOL\LEVONORGESTREL
     Indication: PRODUCT USED FOR UNKNOWN INDICATION
     Dosage: 1 DF (0.15-0.03 MG), UNK
     Route: 065
     Dates: start: 20180105
  3. BLISOVI FE 1 [Concomitant]
     Indication: PRODUCT USED FOR UNKNOWN INDICATION
     Dosage: 1 DF (1 MG-20 MCG), UNK
     Route: 065
     Dates: start: 20171024
  4. TERCONAZOLE. [Concomitant]
     Active Substance: TERCONAZOLE
     Indication: PRODUCT USED FOR UNKNOWN INDICATION
     Dosage: 0.4 %, UNK
     Route: 065
     Dates: start: 20171021
  5. FLUCONAZOLE. [Concomitant]
     Active Substance: FLUCONAZOLE
     Indication: PRODUCT USED FOR UNKNOWN INDICATION
     Dosage: 150 MG, UNK
     Route: 065
     Dates: start: 20171021
  6. CEPHALEXIN. [Concomitant]
     Active Substance: CEPHALEXIN
     Indication: PRODUCT USED FOR UNKNOWN INDICATION
     Dosage: 500 MG, UNK
     Route: 065
     Dates: start: 20180611
  7. TRIAMCINOLONE ACETONIDE. [Concomitant]
     Active Substance: TRIAMCINOLONE ACETONIDE
     Indication: PRODUCT USED FOR UNKNOWN INDICATION
     Dosage: 0.1 %, UNK
     Route: 065
     Dates: start: 20180307
  8. GILENYA [Suspect]
     Active Substance: FINGOLIMOD HYDROCHLORIDE
     Indication: MULTIPLE SCLEROSIS
     Dosage: 0.5 MG, QD
     Route: 048
     Dates: start: 20171112
  9. GILENYA [Suspect]
     Active Substance: FINGOLIMOD HYDROCHLORIDE
     Dosage: 0.5 MG, QD
     Route: 048
     Dates: start: 20180820
  10. ALEVE [Suspect]
     Active Substance: NAPROXEN SODIUM
     Indication: PRODUCT USED FOR UNKNOWN INDICATION
     Dosage: UNK UNK, QD
     Route: 065
  11. BLISOVI FE 1 [Concomitant]
     Dosage: 75 MG, UNK
     Route: 065

REACTIONS (35)
  - Memory impairment [Unknown]
  - Somnolence [Unknown]
  - Nausea [Unknown]
  - Eye pain [Not Recovered/Not Resolved]
  - Photophobia [Unknown]
  - Dysphagia [Unknown]
  - Dysuria [Unknown]
  - Poor quality sleep [Unknown]
  - Urinary retention [Unknown]
  - Syncope [Unknown]
  - White blood cell count decreased [Unknown]
  - Clumsiness [Unknown]
  - Blepharospasm [Not Recovered/Not Resolved]
  - Colour blindness [Unknown]
  - Aphasia [Unknown]
  - Tinnitus [Unknown]
  - Headache [Not Recovered/Not Resolved]
  - Depression [Unknown]
  - Visual impairment [Unknown]
  - Depressed mood [Unknown]
  - Insomnia [Unknown]
  - Arthralgia [Unknown]
  - Suicidal ideation [Unknown]
  - Stress [Unknown]
  - Dyspepsia [Unknown]
  - Intentional self-injury [Unknown]
  - Muscle spasms [Unknown]
  - Photopsia [Not Recovered/Not Resolved]
  - Middle ear effusion [Unknown]
  - Alopecia [Not Recovered/Not Resolved]
  - Migraine [Not Recovered/Not Resolved]
  - Fatigue [Unknown]
  - Hypoacusis [Unknown]
  - Mood altered [Unknown]
  - Back pain [Unknown]

NARRATIVE: CASE EVENT DATE: 20180501
